FAERS Safety Report 4835392-2 (Version None)
Quarter: 2005Q4

REPORT INFORMATION
  Report Type: 
  Country: None (occurrence: None)
  Receive Date: 20051118
  Receipt Date: 20051107
  Transmission Date: 20060501
  Serious: Yes (Hospitalization)
  Sender: FDA-Public Use
  Company Number: 2005BI014784

PATIENT
  Age: 45 Year
  Sex: Female

DRUGS (15)
  1. AVONEX [Suspect]
     Indication: MULTIPLE SCLEROSIS
     Dosage: IM
     Route: 030
  2. MAXZIDE [Concomitant]
  3. VYTORIN [Concomitant]
  4. LOTREL [Concomitant]
  5. TOPROL-XL [Concomitant]
  6. PROVIGIL [Concomitant]
  7. DOXEPIN HCL [Concomitant]
  8. PREVACID [Concomitant]
  9. CARBAMAZEPINE [Concomitant]
  10. TRAMADOL HCL [Concomitant]
  11. LEXAPRO [Concomitant]
  12. BACLOFEN [Concomitant]
  13. NOVOLOG [Concomitant]
  14. ASPIRIN [Concomitant]
  15. DHEA [Concomitant]

REACTIONS (2)
  - RENAL CELL CARCINOMA STAGE UNSPECIFIED [None]
  - TUMOUR HAEMORRHAGE [None]
